FAERS Safety Report 14848146 (Version 1)
Quarter: 2018Q2

REPORT INFORMATION
  Report Type: Spontaneous
  Country: US (occurrence: US)
  Receive Date: 20180419
  Receipt Date: 20180419
  Transmission Date: 20180711
  Serious: Yes (Hospitalization)
  Sender: FDA-Public Use
  Company Number: None

PATIENT
  Age: 87 Year
  Sex: Male

DRUGS (1)
  1. LEVOFLOXACIN. [Suspect]
     Active Substance: LEVOFLOXACIN
     Indication: URINARY TRACT INFECTION
     Route: 048
     Dates: start: 20180111, end: 20180214

REACTIONS (9)
  - Chills [None]
  - Pyrexia [None]
  - Blood lactic acid increased [None]
  - Ileus [None]
  - Abdominal pain [None]
  - Diarrhoea [None]
  - Vomiting [None]
  - Leukocytosis [None]
  - Small intestinal obstruction [None]

NARRATIVE: CASE EVENT DATE: 20180217
